FAERS Safety Report 8556179-3 (Version None)
Quarter: 2012Q3

REPORT INFORMATION
  Report Type: 
  Country: None (occurrence: None)
  Receive Date: 20120801
  Receipt Date: 20120705
  Transmission Date: 20120928
  Serious: Yes (Other)
  Sender: FDA-Public Use
  Company Number: BR-GE HEALTHCARE MEDICAL DIAGNOSTICS-OMPQ-PR-1207S-0828

PATIENT

DRUGS (2)
  1. OMNIPAQUE 140 [Suspect]
     Indication: PRODUCT USED FOR UNKNOWN INDICATION
  2. OMNIPAQUE 140 [Suspect]
     Indication: DIAGNOSTIC PROCEDURE

REACTIONS (1)
  - BACTERAEMIA [None]
